FAERS Safety Report 13585754 (Version 1)
Quarter: 2017Q2

REPORT INFORMATION
  Report Type: Not Available
  Country: AU (occurrence: AU)
  Receive Date: 20170526
  Receipt Date: 20170526
  Transmission Date: 20170830
  Serious: Yes (Other)
  Sender: FDA-Public Use
  Company Number: AU-ANIPHARMA-2017-AU-000022

PATIENT
  Age: 30 Year
  Sex: Male

DRUGS (1)
  1. PHENYTOIN SODIUM (NON-SPECIFIC) [Suspect]
     Active Substance: PHENYTOIN SODIUM
     Dosage: 20 G
     Route: 048

REACTIONS (6)
  - Nystagmus [Unknown]
  - Intentional overdose [Unknown]
  - Dysarthria [Unknown]
  - Coma [Unknown]
  - Ataxia [Unknown]
  - Ileus [Unknown]
